FAERS Safety Report 24409511 (Version 1)
Quarter: 2024Q4

REPORT INFORMATION
  Report Type: Report from Study
  Country: US (occurrence: US)
  Receive Date: 20241008
  Receipt Date: 20241008
  Transmission Date: 20250115
  Serious: Yes (Hospitalization)
  Sender: ACCORD
  Company Number: US-Accord-449070

PATIENT
  Sex: Male

DRUGS (1)
  1. CLOZAPINE [Suspect]
     Active Substance: CLOZAPINE
     Indication: Schizophrenia
     Dosage: 50 MG IN THE MORNING AND 100MG AT NIGHT

REACTIONS (3)
  - Hyperhidrosis [Unknown]
  - Atrial flutter [Unknown]
  - Pallor [Unknown]
